FAERS Safety Report 8353694-2 (Version None)
Quarter: 2012Q2

REPORT INFORMATION
  Report Type: 
  Country: None (occurrence: None)
  Receive Date: 20120511
  Receipt Date: 20110825
  Transmission Date: 20120825
  Serious: No
  Sender: FDA-Public Use
  Company Number: US-GLAXOSMITHKLINE-A0943005A

PATIENT
  Sex: Female

DRUGS (1)
  1. TYKERB [Suspect]
     Route: 048

REACTIONS (1)
  - SWEAT DISCOLOURATION [None]
